FAERS Safety Report 10597545 (Version 1)
Quarter: 2014Q4

REPORT INFORMATION
  Report Type: Spontaneous
  Country: US (occurrence: None)
  Receive Date: 20141120
  Receipt Date: 20141120
  Transmission Date: 20150529
  Serious: Yes (Other)
  Sender: FDA-Public Use
  Company Number: None

PATIENT
  Age: 65 Year
  Sex: Female
  Weight: 88.45 kg

DRUGS (8)
  1. PANTOPRAZOLE SODIUM [Suspect]
     Active Substance: PANTOPRAZOLE SODIUM
     Indication: GASTROOESOPHAGEAL REFLUX DISEASE
     Dosage: 40MG ?1 TABLET DAILY?30MIN BEFORE EVENING MEAL?BY MOUTH
     Route: 048
     Dates: start: 20140507, end: 20140521
  2. ZETIA [Concomitant]
     Active Substance: EZETIMIBE
  3. LUMIGAN [Concomitant]
     Active Substance: BIMATOPROST
  4. TIMOLOL MALEATE. [Concomitant]
     Active Substance: TIMOLOL MALEATE
  5. CLARITIN [Concomitant]
     Active Substance: LORATADINE
  6. CARVEDILOL. [Concomitant]
     Active Substance: CARVEDILOL
  7. D3 [Concomitant]
     Active Substance: 25-HYDROXYCHOLECALCIFEROL, 5-TRANS-
  8. VITAMIN B12 [Concomitant]
     Active Substance: CYANOCOBALAMIN

REACTIONS (3)
  - Lymphadenopathy [None]
  - Breast inflammation [None]
  - Breast tenderness [None]

NARRATIVE: CASE EVENT DATE: 20140520
